FAERS Safety Report 23722154 (Version 1)
Quarter: 2024Q2

REPORT INFORMATION
  Report Type: Spontaneous
  Country: US (occurrence: None)
  Receive Date: 20240408
  Receipt Date: 20240408
  Transmission Date: 20240716
  Serious: No
  Sender: FDA-Public Use
  Company Number: None

PATIENT
  Age: 83 Year
  Sex: Female

DRUGS (1)
  1. JANTOVEN [Suspect]
     Active Substance: WARFARIN SODIUM
     Dosage: OTHER FREQUENCY : 1-1.5 DAILY;?
     Route: 048

REACTIONS (4)
  - Haemorrhage [None]
  - Product appearance confusion [None]
  - Product colour issue [None]
  - Product dosage form confusion [None]
